FAERS Safety Report 4921283-5 (Version None)
Quarter: 2006Q1

REPORT INFORMATION
  Report Type: 
  Country: None (occurrence: None)
  Receive Date: 20060131
  Receipt Date: 20060131
  Transmission Date: 20060701
  Serious: No
  Sender: FDA-Public Use
  Company Number: None

PATIENT

DRUGS (1)
  1. BIO SAFE HAND + FACE KIT  ELEMENT 47  DAMAGE PREVENTION CONCEPT [Suspect]
     Indication: OCCUPATIONAL EXPOSURE TO TOXIC AGENT
     Dosage: SPRAY HANDS THOROUGHLY

REACTIONS (1)
  - NO ADVERSE DRUG EFFECT [None]
